FAERS Safety Report 8283810-2 (Version None)
Quarter: 2012Q2

REPORT INFORMATION
  Report Type: 
  Country: None (occurrence: None)
  Receive Date: 20120413
  Receipt Date: 20110815
  Transmission Date: 20120825
  Serious: No
  Sender: FDA-Public Use
  Company Number: US-ASTRAZENECA-2011SE48536

PATIENT
  Age: 30463 Day
  Sex: Female

DRUGS (1)
  1. NEXIUM [Suspect]
     Indication: BURNING SENSATION
     Route: 048
     Dates: start: 20110812

REACTIONS (2)
  - DYSPEPSIA [None]
  - INAPPROPRIATE SCHEDULE OF DRUG ADMINISTRATION [None]
